FAERS Safety Report 20954068 (Version 1)
Quarter: 2022Q2

REPORT INFORMATION
  Report Type: Spontaneous
  Country: US (occurrence: US)
  Receive Date: 20220614
  Receipt Date: 20220614
  Transmission Date: 20220721
  Serious: No
  Sender: FDA-Public Use
  Company Number: US-AMGEN-USASP2022098988

PATIENT
  Sex: Female

DRUGS (4)
  1. OTEZLA [Suspect]
     Active Substance: APREMILAST
     Indication: Psoriasis
     Dosage: 30 MILLIGRAM, BID
     Route: 048
     Dates: start: 20210224
  2. OTEZLA [Suspect]
     Active Substance: APREMILAST
     Dosage: 30 MILLIGRAM, BID
     Route: 048
  3. HUMIRA [Concomitant]
     Active Substance: ADALIMUMAB
     Dosage: CF PEN
     Route: 065
  4. NAPROXEN [Concomitant]
     Active Substance: NAPROXEN
     Dosage: 375 MILLIGRAM
     Route: 065

REACTIONS (4)
  - COVID-19 [Unknown]
  - Therapy non-responder [Unknown]
  - Psoriasis [Unknown]
  - Pain [Unknown]
